FAERS Safety Report 12645296 (Version 2)
Quarter: 2016Q4

REPORT INFORMATION
  Report Type: Report from Study
  Country: KR (occurrence: KR)
  Receive Date: 20160811
  Receipt Date: 20161028
  Transmission Date: 20170207
  Serious: Yes (Hospitalization)
  Sender: FDA-Public Use
  Company Number: KR-CELLTRION INC.-2015KR004038

PATIENT

DRUGS (42)
  1. REMSIMA [Suspect]
     Active Substance: INFLIXIMAB
     Dosage: 200 MG; EVERY 8 WEEKS
     Route: 042
     Dates: start: 20151001, end: 20151001
  2. MOBIC [Concomitant]
     Active Substance: MELOXICAM
     Dosage: 7.5 MG, BID
     Route: 048
     Dates: start: 20151203
  3. ALBIS [Concomitant]
     Active Substance: BISMUTH SUBCITRATE\RANITIDINE HYDROCHLORIDE\SUCRALFATE
     Dosage: 0.5 TABLET, DAILY
     Route: 048
     Dates: start: 20150809, end: 20151202
  4. DICAMAX [Concomitant]
     Indication: MINERAL SUPPLEMENTATION
     Dosage: 1 TABLET, DAILY
     Route: 048
     Dates: start: 20130802, end: 20140818
  5. FEROBA-YOU [Concomitant]
     Indication: ANAEMIA
     Dosage: 256 MG, ONCE A DAY
     Route: 048
     Dates: start: 20140228, end: 20140818
  6. REMSIMA [Suspect]
     Active Substance: INFLIXIMAB
     Indication: RHEUMATOID ARTHRITIS
     Dosage: 200 MG; EVERY 8 WEEKS
     Route: 042
     Dates: start: 20141113, end: 20141113
  7. REMSIMA [Suspect]
     Active Substance: INFLIXIMAB
     Dosage: 200 MG; EVERY 8 WEEKS
     Route: 042
     Dates: start: 20141127, end: 20141127
  8. REMSIMA [Suspect]
     Active Substance: INFLIXIMAB
     Dosage: 200 MG; EVERY 8 WEEKS
     Dates: start: 20160602, end: 20160602
  9. METHOTREXATE. [Concomitant]
     Active Substance: METHOTREXATE
     Indication: RHEUMATOID ARTHRITIS
     Dosage: 10 MG, 1/WEEK
     Route: 048
     Dates: start: 20140819
  10. OXIKLORIN [Concomitant]
     Active Substance: HYDROXYCHLOROQUINE SULFATE
     Indication: RHEUMATOID ARTHRITIS
     Dosage: 200 MG, ONCE A DAY
     Route: 048
     Dates: start: 20110425, end: 20141112
  11. RIMATIL [Concomitant]
     Active Substance: BUCILLAMINE
     Indication: RHEUMATOID ARTHRITIS
     Dosage: 100 MG, ONCE A DAY
     Route: 048
     Dates: start: 20140121, end: 20140818
  12. MELCOX [Concomitant]
     Indication: RHEUMATOID ARTHRITIS
     Dosage: 7.5 MG, ONCE A DAY
     Route: 048
     Dates: start: 20110721, end: 20140818
  13. METHYLON                           /00049601/ [Concomitant]
     Dosage: 4 MG, DAILY
     Route: 048
     Dates: start: 20160602
  14. PARAMACET [Concomitant]
     Active Substance: ACETAMINOPHEN\TRAMADOL
     Indication: RHEUMATOID ARTHRITIS
     Dosage: 1 DF, DAILY
     Route: 048
     Dates: start: 20151222
  15. REMSIMA [Suspect]
     Active Substance: INFLIXIMAB
     Dosage: 200 MG; EVERY 8 WEEKS
     Route: 042
     Dates: start: 20150217, end: 20150217
  16. MOBIC [Concomitant]
     Active Substance: MELOXICAM
     Dosage: 7.5 MG, ONCE A DAY
     Route: 048
     Dates: start: 20150217, end: 20150706
  17. ADMINFORTE [Concomitant]
     Indication: MINERAL SUPPLEMENTATION
     Dosage: 1 TABLET, DAILY
     Route: 048
     Dates: start: 20140819
  18. REMSIMA [Suspect]
     Active Substance: INFLIXIMAB
     Dosage: 200 MG; EVERY 8 WEEKS
     Route: 042
     Dates: start: 20150414, end: 20150414
  19. METHYLON                           /00049601/ [Concomitant]
     Dosage: 6 MG, ONCE A DAY
     Route: 048
     Dates: start: 20140819, end: 20140917
  20. METHYLON                           /00049601/ [Concomitant]
     Indication: RHEUMATOID ARTHRITIS
     Dosage: 5 MG, ONCE A DAY
     Route: 048
     Dates: start: 20140918
  21. ALBIS [Concomitant]
     Active Substance: BISMUTH SUBCITRATE\RANITIDINE HYDROCHLORIDE\SUCRALFATE
     Dosage: 1 TABLET, BID
     Route: 048
     Dates: start: 20140819, end: 20150216
  22. FOLIC ACID. [Concomitant]
     Active Substance: FOLIC ACID
     Indication: VITAMIN SUPPLEMENTATION
     Dosage: 1 MG, ONCE A DAY
     Route: 048
     Dates: start: 20140819
  23. REMSIMA [Suspect]
     Active Substance: INFLIXIMAB
     Dosage: 200 MG; EVERY 8 WEEKS
     Route: 042
     Dates: start: 20141223, end: 20141223
  24. REMSIMA [Suspect]
     Active Substance: INFLIXIMAB
     Dosage: 200 MG; EVERY 8 WEEKS
     Route: 042
     Dates: start: 20151203, end: 20151203
  25. MOBIC [Concomitant]
     Active Substance: MELOXICAM
     Indication: RHEUMATOID ARTHRITIS
     Dosage: 7.5 MG, BID
     Route: 048
     Dates: start: 20140819, end: 20150216
  26. KYNEX 2 [Concomitant]
     Indication: DRY EYE
     Dosage: 1 DROP, PRN
     Route: 047
     Dates: start: 20160318
  27. REMSIMA [Suspect]
     Active Substance: INFLIXIMAB
     Dosage: 200 MG; EVERY 8 WEEKS
     Dates: start: 20150806, end: 20150806
  28. REMSIMA [Suspect]
     Active Substance: INFLIXIMAB
     Dosage: 200 MG; EVERY 8 WEEKS
     Dates: start: 20160404, end: 20160404
  29. RIMATIL [Concomitant]
     Active Substance: BUCILLAMINE
     Dosage: 100 MG, BID
     Route: 048
     Dates: start: 20140819, end: 20141112
  30. METHYLON                           /00049601/ [Concomitant]
     Indication: RHEUMATOID ARTHRITIS
     Dosage: 2 MG, ONCE A DAY
     Route: 048
     Dates: start: 20110317, end: 20140818
  31. ALBIS [Concomitant]
     Active Substance: BISMUTH SUBCITRATE\RANITIDINE HYDROCHLORIDE\SUCRALFATE
     Dosage: 1 TABLET, BID
     Route: 048
     Dates: start: 20150806, end: 20150808
  32. REMSIMA [Suspect]
     Active Substance: INFLIXIMAB
     Dosage: 200 MG; EVERY 8 WEEKS
     Route: 042
     Dates: start: 20150609, end: 20150609
  33. REMSIMA [Suspect]
     Active Substance: INFLIXIMAB
     Dosage: 200 MG; EVERY 8 WEEKS
     Dates: start: 20150806, end: 20150806
  34. SALAZOPYRIN [Concomitant]
     Active Substance: SULFASALAZINE
     Indication: RHEUMATOID ARTHRITIS
     Dosage: 500 MG, ONCE A DAY
     Route: 048
     Dates: start: 20110930, end: 20140818
  35. ARTRODAR [Concomitant]
     Active Substance: DIACEREIN
     Indication: RHEUMATOID ARTHRITIS
     Dosage: 100 MG, BID
     Route: 048
     Dates: start: 20141030
  36. HYGROTON [Concomitant]
     Active Substance: CHLORTHALIDONE
     Indication: HYPERTENSION
     Dosage: 25 MG, DAILY
     Route: 048
     Dates: start: 20151001
  37. REMSIMA [Suspect]
     Active Substance: INFLIXIMAB
     Dosage: 200 MG; EVERY 8 WEEKS
     Dates: start: 20160204, end: 20160204
  38. MOBIC [Concomitant]
     Active Substance: MELOXICAM
     Dosage: 7.5 MG, ONCE A DAY
     Route: 048
     Dates: start: 20150713, end: 20151202
  39. MOBIC [Concomitant]
     Active Substance: MELOXICAM
     Dosage: 7.5 MG, DAILY
     Route: 048
     Dates: start: 20151222
  40. ALBIS [Concomitant]
     Active Substance: BISMUTH SUBCITRATE\RANITIDINE HYDROCHLORIDE\SUCRALFATE
     Indication: GASTRITIS PROPHYLAXIS
     Dosage: 1 TABLET, DAILY
     Route: 048
     Dates: start: 20110930, end: 20140818
  41. SYNTHROID [Concomitant]
     Active Substance: LEVOTHYROXINE SODIUM
     Indication: GOITRE
     Dosage: 1 DF; ONCE A DAY
     Route: 048
     Dates: start: 20140610
  42. PENIRAMIN [Concomitant]
     Indication: PREMEDICATION
     Dosage: 4 MG (4MG/2ML), BEFORE REMSIMA INFUSION
     Route: 042
     Dates: start: 20141113

REACTIONS (8)
  - Otitis media [Recovered/Resolved]
  - Otitis media chronic [Recovering/Resolving]
  - Irritable bowel syndrome [Recovering/Resolving]
  - Oesophagitis [Recovered/Resolved]
  - Gastrooesophageal reflux disease [Recovered/Resolved]
  - Diarrhoea [Recovered/Resolved]
  - Rash [Recovered/Resolved]
  - Hypertension [Not Recovered/Not Resolved]

NARRATIVE: CASE EVENT DATE: 20141114
